FAERS Safety Report 8889346 (Version 1)
Quarter: 2012Q4

REPORT INFORMATION
  Report Type: Spontaneous
  Country: US (occurrence: None)
  Receive Date: 20121102
  Receipt Date: 20121102
  Transmission Date: 20130627
  Serious: Yes (Life-Threatening, Hospitalization, Disabling)
  Sender: FDA-Public Use
  Company Number: None

PATIENT
  Age: 83 Year
  Sex: Female
  Weight: 67.4 kg

DRUGS (2)
  1. PRADAXA [Suspect]
     Indication: ATRIAL FIBRILLATION
     Dosage: 1 tablet twice daily po
     Route: 048
     Dates: start: 20121020, end: 20121025
  2. PRADAXA [Suspect]
     Indication: ISCHEMIC STROKE
     Dosage: 1 tablet twice daily po
     Route: 048
     Dates: start: 20121020, end: 20121025

REACTIONS (3)
  - Mental status changes [None]
  - Speech disorder [None]
  - Subarachnoid haemorrhage [None]
